FAERS Safety Report 8304597-0 (Version None)
Quarter: 2012Q2

REPORT INFORMATION
  Report Type: 
  Country: None (occurrence: None)
  Receive Date: 20120423
  Receipt Date: 20120412
  Transmission Date: 20120825
  Serious: Yes (Hospitalization)
  Sender: FDA-Public Use
  Company Number: US-VERTEX PHARMACEUTICALS INC.-AE-2012-005231

PATIENT
  Sex: Female
  Weight: 74.002 kg

DRUGS (6)
  1. PEGASYS [Concomitant]
     Indication: HEPATITIS C
     Route: 058
     Dates: start: 20120405
  2. INCIVEK [Suspect]
     Indication: HEPATITIS C
     Route: 048
     Dates: start: 20120405
  3. ZOFRAN [Concomitant]
     Indication: NAUSEA
     Route: 048
  4. RANITIDINE [Concomitant]
     Indication: GASTROOESOPHAGEAL REFLUX DISEASE
     Route: 048
  5. ZOFRAN [Concomitant]
     Indication: VOMITING
  6. RIBAVIRIN [Concomitant]
     Indication: HEPATITIS C
     Route: 048
     Dates: start: 20120405

REACTIONS (5)
  - PROCTALGIA [None]
  - MIGRAINE [None]
  - DIARRHOEA [None]
  - RASH PUSTULAR [None]
  - ANORECTAL DISCOMFORT [None]
